FAERS Safety Report 18520556 (Version 1)
Quarter: 2020Q4

REPORT INFORMATION
  Report Type: Spontaneous
  Country: GB (occurrence: GB)
  Receive Date: 20201119
  Receipt Date: 20201119
  Transmission Date: 20210114
  Serious: Yes (Other)
  Sender: FDA-Public Use
  Company Number: GB-TEVA-2020-GB-1849568

PATIENT
  Age: 30 Year
  Sex: Female
  Weight: 100 kg

DRUGS (2)
  1. LEVOTHYROXINE SODIUM. [Concomitant]
     Active Substance: LEVOTHYROXINE SODIUM
  2. AMOXICILLIN. [Suspect]
     Active Substance: AMOXICILLIN
     Indication: EAR INFECTION
     Dosage: WITH MINIMUM OF 4 HOURS IN BETWEEN, 3 DF
     Route: 048
     Dates: start: 20201014, end: 20201021

REACTIONS (5)
  - Dysuria [Unknown]
  - Vaginal odour [Unknown]
  - Vulvovaginal candidiasis [Not Recovered/Not Resolved]
  - Vaginal discharge [Unknown]
  - Pruritus [Unknown]

NARRATIVE: CASE EVENT DATE: 20201020
